FAERS Safety Report 15134246 (Version 1)
Quarter: 2018Q3

REPORT INFORMATION
  Report Type: Spontaneous
  Country: FR (occurrence: FR)
  Receive Date: 20180712
  Receipt Date: 20180712
  Transmission Date: 20181010
  Serious: Yes (Hospitalization)
  Sender: FDA-Public Use
  Company Number: FR-TEVA-2018-FR-924109

PATIENT
  Age: 35 Year
  Sex: Female
  Weight: 57 kg

DRUGS (4)
  1. CYPROTERONE (ACETATE DE) [Suspect]
     Active Substance: CYPROTERONE
     Indication: HYPERANDROGENISM
     Dosage: 50 MILLIGRAM DAILY;
     Route: 048
     Dates: end: 20180323
  2. PROGESTOGEL [Concomitant]
     Indication: ALOPECIA
     Route: 003
  3. MINOXIDIL. [Suspect]
     Active Substance: MINOXIDIL
     Indication: HYPERANDROGENISM
     Dosage: 1 DOSAGE FORMS DAILY;
     Route: 003
     Dates: end: 20180323
  4. PROVAMES 2 MG, COMPRIM? PELLICUL? [Suspect]
     Active Substance: ESTRADIOL
     Indication: HYPERANDROGENISM
     Dosage: 1 DOSAGE FORMS DAILY;
     Route: 048
     Dates: end: 20180323

REACTIONS (1)
  - Meningioma [Recovering/Resolving]

NARRATIVE: CASE EVENT DATE: 20180323
